FAERS Safety Report 5170908-0 (Version None)
Quarter: 2006Q4

REPORT INFORMATION
  Report Type: 
  Country: None (occurrence: None)
  Receive Date: 20061205
  Receipt Date: 20061205
  Transmission Date: 20070319
  Serious: Yes (Life-Threatening, Hospitalization, Other)
  Sender: FDA-Public Use
  Company Number: None

PATIENT
  Age: 37 Year
  Sex: Male
  Weight: 68.0396 kg

DRUGS (2)
  1. TEQUIN [Suspect]
     Indication: SKIN INFECTION
     Dosage: 400 MG  ONCE DAILY  PO
     Route: 048
     Dates: start: 20050313, end: 20050320
  2. TEQUIN [Suspect]
     Indication: SKIN INFECTION
     Dosage: 400 MG  ONCE DAILY  PO
     Route: 048
     Dates: start: 20051216, end: 20051225

REACTIONS (4)
  - DIABETES MELLITUS [None]
  - SKIN INFECTION [None]
  - UNEVALUABLE EVENT [None]
  - VISUAL ACUITY REDUCED [None]
